FAERS Safety Report 5909176-8 (Version None)
Quarter: 2008Q4

REPORT INFORMATION
  Report Type: 
  Country: None (occurrence: None)
  Receive Date: 20081006
  Receipt Date: 20080924
  Transmission Date: 20090506
  Serious: Yes (Hospitalization)
  Sender: FDA-Public Use
  Company Number: AT-PFIZER INC-2008081414

PATIENT
  Sex: Male

DRUGS (2)
  1. ALDACTONE [Suspect]
     Route: 048
  2. LASIX [Concomitant]

REACTIONS (1)
  - MASTITIS [None]
